FAERS Safety Report 6445916-X (Version None)
Quarter: 2009Q4

REPORT INFORMATION
  Report Type: 
  Country: None (occurrence: None)
  Receive Date: 20091119
  Receipt Date: 20081203
  Transmission Date: 20100525
  Serious: No
  Sender: FDA-Public Use
  Company Number: A0759071A

PATIENT
  Sex: Female

DRUGS (10)
  1. WELLBUTRIN SR [Suspect]
     Indication: DEPRESSION
     Dosage: 150MG PER DAY
     Route: 048
     Dates: start: 20080601
  2. NEXIUM [Concomitant]
  3. LYRICA [Concomitant]
  4. ESTRADIOL [Concomitant]
  5. LANOXIN [Concomitant]
  6. COZAAR [Concomitant]
  7. ASPIRIN [Concomitant]
  8. XANAX [Concomitant]
  9. MELOXICAM [Concomitant]
  10. DARVOCET-N 100 [Concomitant]

REACTIONS (1)
  - DRUG INEFFECTIVE [None]
